FAERS Safety Report 5709320-1 (Version None)
Quarter: 2008Q2

REPORT INFORMATION
  Report Type: 
  Country: None (occurrence: None)
  Receive Date: 20080418
  Receipt Date: 20080408
  Transmission Date: 20081010
  Serious: Yes (Hospitalization)
  Sender: FDA-Public Use
  Company Number: DE-GENENTECH-257627

PATIENT
  Sex: Male

DRUGS (1)
  1. MABTHERA [Suspect]
     Indication: MULTIPLE SCLEROSIS
     Dosage: UNK, UNK
     Dates: start: 20070701, end: 20070701

REACTIONS (2)
  - INFECTION [None]
  - NEUTROPENIA [None]
